FAERS Safety Report 5003668-4 (Version None)
Quarter: 2006Q2

REPORT INFORMATION
  Report Type: 
  Country: None (occurrence: None)
  Receive Date: 20060515
  Receipt Date: 20060503
  Transmission Date: 20061013
  Serious: Yes (Other)
  Sender: FDA-Public Use
  Company Number: 2004033553

PATIENT
  Age: 23 Year
  Sex: Female
  Weight: 52 kg

DRUGS (16)
  1. ZOLOFT [Suspect]
     Indication: DEPRESSION
     Dosage: 50 MG (50 MG, 1 IN 1 D),ORAL
     Route: 048
     Dates: start: 19990101
  2. PROVERA [Suspect]
     Indication: UTERINE HAEMORRHAGE
     Dosage: 20 MG (10 MG, 2 IN 1 D), ORAL
     Route: 048
     Dates: start: 20050810
  3. TINIDAZOLE/TIOCONAZOLE (TICONADOLE, TINIDAZOLE) [Suspect]
     Indication: BACTERIAL INFECTION
     Dosage: VAGINAL
     Route: 067
     Dates: start: 20050825
  4. TINIDAZOLE/TIOCONAZOLE (TICONADOLE, TINIDAZOLE) [Suspect]
     Indication: VAGINAL INFECTION
     Dosage: VAGINAL
     Route: 067
     Dates: start: 20050825
  5. CLONAZEPAM [Suspect]
     Indication: BIPOLAR DISORDER
     Dosage: 3 MG (3 MG, 1 IN 1 D), ORAL
     Route: 048
     Dates: start: 20050803
  6. DIANE (CYPROTERONE ACETATE, ETHINYLESTRADIOL) [Suspect]
     Indication: ORAL CONTRACEPTION
     Dosage: (DAILY), ORAL
     Route: 048
     Dates: start: 20051001
  7. SYNTHROID [Concomitant]
  8. PIROXICAM [Concomitant]
  9. ROHYPNOL (FLUNITRAZEPAM) [Concomitant]
  10. L-LYSINE (LYSINE) [Concomitant]
  11. AMPLICTIL (CHLORPROMAZINE) [Concomitant]
  12. HERBRAL PREPARATION (HERBRAL PREPARATION) [Concomitant]
  13. BETAFAN (LEVOBUNOLOL HYDROCHLORIDE) [Concomitant]
  14. ALL OTHER THERAPEUTIC PRODUCTS (ALL OTHER THERAPEUTIC PRODUCTS) [Concomitant]
  15. MIDAZOLAM HCL [Concomitant]
  16. VITAMINS (VITAMINS) [Concomitant]

REACTIONS (32)
  - ABORTION [None]
  - ALCOHOLISM [None]
  - AMNESIA [None]
  - ANOREXIA [None]
  - ANXIETY [None]
  - BACTERIAL INFECTION [None]
  - BIPOLAR DISORDER [None]
  - BLOOD PRESSURE DECREASED [None]
  - DEPRESSION [None]
  - DIZZINESS [None]
  - DRUG EXPOSURE DURING PREGNANCY [None]
  - EUPHORIC MOOD [None]
  - EYELID PTOSIS [None]
  - GALACTORRHOEA [None]
  - HEADACHE [None]
  - HYPOAESTHESIA [None]
  - HYPOTHYROIDISM [None]
  - INFLUENZA [None]
  - IRRITABILITY [None]
  - MANIA [None]
  - MUSCULOSKELETAL PAIN [None]
  - NAUSEA [None]
  - SEBORRHOEIC DERMATITIS [None]
  - SINUSITIS [None]
  - SOMNOLENCE [None]
  - SUICIDE ATTEMPT [None]
  - TACHYCARDIA [None]
  - TREMOR [None]
  - UTERINE HAEMORRHAGE [None]
  - VAGINAL DISORDER [None]
  - VAGINAL HAEMORRHAGE [None]
  - WEIGHT DECREASED [None]
